FAERS Safety Report 15211897 (Version 1)
Quarter: 2018Q3

REPORT INFORMATION
  Report Type: Spontaneous
  Country: US (occurrence: US)
  Receive Date: 20180702
  Receipt Date: 20180702
  Transmission Date: 20181010
  Serious: Yes (Life-Threatening, Hospitalization)
  Sender: FDA-Public Use
  Company Number: None

PATIENT
  Age: 1 Month
  Sex: Male
  Weight: 4.05 kg

DRUGS (3)
  1. RANITIDINE 15MG/ML (75MG/5ML) SYRUP [Suspect]
     Active Substance: RANITIDINE HYDROCHLORIDE
     Indication: GASTROOESOPHAGEAL REFLUX DISEASE
     Dosage: ?          QUANTITY:1 DROP(S);?
     Route: 048
     Dates: start: 20180629, end: 20180629
  2. VITAMIN D [Concomitant]
     Active Substance: CHOLECALCIFEROL
  3. GAS DROPS [Concomitant]

REACTIONS (1)
  - Supraventricular tachycardia [None]

NARRATIVE: CASE EVENT DATE: 20180629
